FAERS Safety Report 7892209-X (Version None)
Quarter: 2011Q4

REPORT INFORMATION
  Report Type: 
  Country: None (occurrence: None)
  Receive Date: 20111104
  Receipt Date: 20111025
  Transmission Date: 20120403
  Serious: Yes (Other)
  Sender: FDA-Public Use
  Company Number: US-ASTRAZENECA-2011SE64780

PATIENT
  Age: 57 Year
  Sex: Male

DRUGS (2)
  1. SEROQUEL XR [Suspect]
     Indication: DEPRESSION
     Route: 048
  2. IBUPROFEN (ADVIL) [Concomitant]

REACTIONS (5)
  - ABDOMINAL PAIN UPPER [None]
  - RECTAL HAEMORRHAGE [None]
  - INTESTINAL ISCHAEMIA [None]
  - COLONIC OBSTRUCTION [None]
  - GENITOURINARY TRACT NEOPLASM [None]
